FAERS Safety Report 9614529 (Version 1)
Quarter: 2013Q4

REPORT INFORMATION
  Report Type: Spontaneous
  Country: TR (occurrence: TR)
  Receive Date: 20131011
  Receipt Date: 20131011
  Transmission Date: 20140711
  Serious: Yes (Other)
  Sender: FDA-Public Use
  Company Number: PHHY2013TR112645

PATIENT
  Age: 61 Year
  Sex: Female

DRUGS (3)
  1. ZOLEDRONIC ACID [Suspect]
     Indication: METASTASES TO BONE
     Dosage: 4 MG
     Route: 042
  2. COLECALCIFEROL [Concomitant]
     Dosage: 400 MG, BID
  3. CALCIUM [Concomitant]
     Dosage: 600 MG, UNK

REACTIONS (10)
  - Hemiplegia [Unknown]
  - Spinal disorder [Unknown]
  - Arterial occlusive disease [Unknown]
  - Brain oedema [Unknown]
  - Abasia [Unknown]
  - Activities of daily living impaired [Unknown]
  - Neoplasm progression [Unknown]
  - Pyrexia [Unknown]
  - Arthralgia [Unknown]
  - Myalgia [Unknown]
